FAERS Safety Report 7575418-9 (Version None)
Quarter: 2011Q2

REPORT INFORMATION
  Report Type: 
  Country: None (occurrence: None)
  Receive Date: 20110627
  Receipt Date: 20110616
  Transmission Date: 20111010
  Serious: Yes (Death, Hospitalization, Other)
  Sender: FDA-Public Use
  Company Number: US-B.I. PHARMACEUTICALS,INC./RIDGEFIELD-2011-DE-03651GD

PATIENT
  Sex: Male

DRUGS (5)
  1. CARBIDOPA AND LEVODOPA [Suspect]
     Indication: PARKINSON'S DISEASE
  2. PRAMIPEXOLE DIHYDROCHLORIDE [Suspect]
     Indication: PARKINSON'S DISEASE
     Dosage: ESCALATING DOSES
  3. PRAMIPEXOLE DIHYDROCHLORIDE [Suspect]
     Dosage: 3 MG
  4. PRAMIPEXOLE DIHYDROCHLORIDE [Suspect]
     Dosage: 4.5 MG
  5. CARBIDOPA AND LEVODOPA [Suspect]
     Dosage: EXCESSIVE SELF-DOSING

REACTIONS (6)
  - BIPOLAR DISORDER [None]
  - COMPLETED SUICIDE [None]
  - HYPERSEXUALITY [None]
  - ABNORMAL BEHAVIOUR [None]
  - INTENTIONAL DRUG MISUSE [None]
  - MANIA [None]
